FAERS Safety Report 20119884 (Version 2)
Quarter: 2021Q4

REPORT INFORMATION
  Report Type: Spontaneous
  Country: IT (occurrence: IT)
  Receive Date: 20211126
  Receipt Date: 20211210
  Transmission Date: 20220303
  Serious: Yes (Death)
  Sender: FDA-Public Use
  Company Number: None

PATIENT
  Age: 76 Year
  Sex: Male

DRUGS (1)
  1. HYRIMOZ [Suspect]
     Active Substance: ADALIMUMAB-ADAZ
     Indication: Psoriasis
     Dosage: 40 MG, CYCLIC
     Route: 030
     Dates: start: 20200201

REACTIONS (4)
  - Pulmonary tuberculosis [Fatal]
  - Dyspnoea [Fatal]
  - Meningitis [Fatal]
  - Weight decreased [Fatal]

NARRATIVE: CASE EVENT DATE: 20211001
